FAERS Safety Report 16233608 (Version 1)
Quarter: 2019Q2

REPORT INFORMATION
  Report Type: Report from Study
  Country: None (occurrence: BR)
  Receive Date: 20190424
  Receipt Date: 20190424
  Transmission Date: 20190711
  Serious: Yes (Disabling, Other)
  Sender: FDA-Public Use
  Company Number: BR-ABBVIE-19K-020-2750096-00

PATIENT
  Age: 62 Year
  Sex: Male
  Weight: 56 kg

DRUGS (1)
  1. HUMIRA [Suspect]
     Active Substance: ADALIMUMAB
     Indication: ANKYLOSING SPONDYLITIS
     Route: 058
     Dates: start: 20151218

REACTIONS (6)
  - Emotional disorder [Unknown]
  - Bone pain [Unknown]
  - Inguinal hernia [Unknown]
  - Impaired work ability [Unknown]
  - Pain [Unknown]
  - Inguinal hernia [Recovering/Resolving]

NARRATIVE: CASE EVENT DATE: 201812
